FAERS Safety Report 8988466 (Version 1)
Quarter: 2012Q4

REPORT INFORMATION
  Report Type: Spontaneous
  Country: US (occurrence: None)
  Receive Date: 20121224
  Receipt Date: 20121224
  Transmission Date: 20130627
  Serious: Yes (Other)
  Sender: FDA-Public Use
  Company Number: None

PATIENT
  Age: 61 Year
  Sex: Female
  Weight: 82.56 kg

DRUGS (2)
  1. INCIVEK [Suspect]
     Indication: HEPATITIS C
     Dosage: 750mg q8h po
     Route: 048
     Dates: start: 20120901, end: 20121120
  2. PEGINTERFERON ALFA-2B [Suspect]
     Indication: HEPATITIS C
     Dosage: 180mcg  q7d  sq
     Route: 058
     Dates: start: 20120909, end: 20121120

REACTIONS (2)
  - Thrombotic thrombocytopenic purpura [None]
  - Haemolytic uraemic syndrome [None]
